FAERS Safety Report 4709284-3 (Version None)
Quarter: 2005Q3

REPORT INFORMATION
  Report Type: 
  Country: None (occurrence: None)
  Receive Date: 20050705
  Receipt Date: 20050620
  Transmission Date: 20060218
  Serious: Yes (Hospitalization)
  Sender: FDA-Public Use
  Company Number: 2005BI010075

PATIENT
  Age: 33 Year
  Sex: Female

DRUGS (7)
  1. AVONEX [Suspect]
     Indication: MULTIPLE SCLEROSIS
     Dosage: 30 UG;QW; IM
     Route: 030
     Dates: start: 20010313
  2. AVONEX [Suspect]
     Indication: MULTIPLE SCLEROSIS
     Dosage: IM
     Route: 030
  3. NEURONTIN [Concomitant]
  4. AMANTADINE [Concomitant]
  5. ZOLOFT [Concomitant]
  6. OXYBUTYNIN [Concomitant]
  7. PREVACID [Concomitant]

REACTIONS (2)
  - MULTIPLE SCLEROSIS [None]
  - MUSCLE SPASTICITY [None]
